FAERS Safety Report 21218895 (Version 1)
Quarter: 2022Q3

REPORT INFORMATION
  Report Type: Spontaneous
  Country: US (occurrence: US)
  Receive Date: 20220816
  Receipt Date: 20220816
  Transmission Date: 20221027
  Serious: No
  Sender: FDA-Public Use
  Company Number: US-NOVARTISTESTPH-NVSC2022US185089

PATIENT
  Sex: Male
  Weight: 86.18 kg

DRUGS (2)
  1. LOSARTAN [Suspect]
     Active Substance: LOSARTAN
     Indication: Blood pressure measurement
     Dosage: UNK
     Route: 065
  2. LOSARTAN [Suspect]
     Active Substance: LOSARTAN
     Dosage: 25 MG
     Route: 065

REACTIONS (4)
  - Heart rate abnormal [Unknown]
  - Hyperhidrosis [Unknown]
  - Sleep disorder [Unknown]
  - Hypertension [Unknown]
